FAERS Safety Report 25936645 (Version 2)
Quarter: 2025Q4

REPORT INFORMATION
  Report Type: Spontaneous
  Country: GB (occurrence: GB)
  Receive Date: 20251017
  Receipt Date: 20251117
  Transmission Date: 20260118
  Serious: Yes (Death, Hospitalization, Other)
  Sender: SANDOZ
  Company Number: None

PATIENT
  Age: 66 Year
  Sex: Female
  Weight: 62 kg

DRUGS (2)
  1. CAPIVASERTIB [Suspect]
     Active Substance: CAPIVASERTIB
     Indication: HER2 negative breast cancer
     Dosage: 400 MILLIGRAM
     Route: 048
     Dates: end: 20250905
  2. FULVESTRANT [Suspect]
     Active Substance: FULVESTRANT
     Indication: HER2 negative breast cancer
     Dosage: 500 MILLIGRAM
     Route: 030
     Dates: end: 20250905

REACTIONS (12)
  - Labour complication [Fatal]
  - Liver function test abnormal [Fatal]
  - Congestive hepatopathy [Fatal]
  - Fatigue [Fatal]
  - Decreased appetite [Fatal]
  - Budd-Chiari syndrome [Fatal]
  - Portal vein thrombosis [Fatal]
  - Malignant neoplasm progression [Fatal]
  - Hypoaesthesia [Fatal]
  - Abdominal pain [Fatal]
  - Multiple sclerosis [Fatal]
  - Pleural effusion [Fatal]

NARRATIVE: CASE EVENT DATE: 20250905
